FAERS Safety Report 25360296 (Version 4)
Quarter: 2025Q3

REPORT INFORMATION
  Report Type: Report from Study
  Country: GB (occurrence: GB)
  Receive Date: 20250527
  Receipt Date: 20250903
  Transmission Date: 20251021
  Serious: Yes (Other)
  Sender: AMGEN
  Company Number: GB-Vifor (International) Inc.-VIT-2024-04239

PATIENT
  Age: 84 Year
  Sex: Female
  Weight: 100.1 kg

DRUGS (21)
  1. AVACOPAN [Suspect]
     Active Substance: AVACOPAN
     Indication: Anti-neutrophil cytoplasmic antibody positive vasculitis
     Dosage: 30 MG, BID
     Route: 048
     Dates: start: 20240322
  2. METHYLPREDNISOLONE [Concomitant]
     Active Substance: METHYLPREDNISOLONE
     Indication: Anti-neutrophil cytoplasmic antibody positive vasculitis
     Dates: start: 20240321, end: 20240321
  3. RITUXIMAB [Concomitant]
     Active Substance: RITUXIMAB
     Indication: Anti-neutrophil cytoplasmic antibody positive vasculitis
     Dates: start: 20240326, end: 20240326
  4. RITUXIMAB [Concomitant]
     Active Substance: RITUXIMAB
     Dates: start: 20240409, end: 20240409
  5. RITUXIMAB [Concomitant]
     Active Substance: RITUXIMAB
     Dates: start: 20250414, end: 20250414
  6. PREDNISOLONE [Concomitant]
     Active Substance: PREDNISOLONE
     Indication: Anti-neutrophil cytoplasmic antibody positive vasculitis
     Dosage: ONCE A DAY FOR 7 DAYS
     Route: 048
     Dates: start: 20240322
  7. PREDNISOLONE [Concomitant]
     Active Substance: PREDNISOLONE
     Dosage: WEAN BY 5 MG PER WEEK.
     Route: 065
     Dates: start: 2024
  8. ENOXAPARIN [Concomitant]
     Active Substance: ENOXAPARIN
     Indication: Thrombosis prophylaxis
     Dosage: ON HOLD AS PER DOCTOR^S ORDER.
     Route: 058
     Dates: start: 20240320, end: 20240323
  9. ATORVASTATIN [Concomitant]
     Active Substance: ATORVASTATIN
     Indication: Product used for unknown indication
     Dosage: 20,MG,QD
     Route: 048
  10. FLUTICASONE FUROATE\UMECLIDINIUM BROMIDE\VILANTEROL TRIFENATATE [Concomitant]
     Active Substance: FLUTICASONE FUROATE\UMECLIDINIUM BROMIDE\VILANTEROL TRIFENATATE
     Indication: Product used for unknown indication
     Dosage: 1,DF,QD
     Dates: start: 20240322
  11. FUROSEMIDE [Concomitant]
     Active Substance: FUROSEMIDE
     Indication: Peripheral swelling
     Dosage: DISCONTINUED AS PER DOCTOR^S ORDERS
     Route: 048
     Dates: start: 20240324, end: 20240328
  12. OMEPRAZOLE [Concomitant]
     Active Substance: OMEPRAZOLE
     Indication: Gastrointestinal disorder prophylaxis
     Dosage: 20,MG,QD
     Route: 048
     Dates: start: 20240322
  13. OMEPRAZOLE [Concomitant]
     Active Substance: OMEPRAZOLE
     Dosage: 20,MG,OD
     Route: 048
     Dates: start: 20230516
  14. AMLODIPINE [Concomitant]
     Active Substance: AMLODIPINE BESYLATE
     Indication: Hypertension
     Dosage: 5,MG,QD
     Route: 048
     Dates: start: 20240327, end: 20240328
  15. AMLODIPINE [Concomitant]
     Active Substance: AMLODIPINE BESYLATE
     Dosage: INCREASED DOSE TO 10 MG
     Route: 048
     Dates: start: 20240329
  16. ALBUTEROL [Concomitant]
     Active Substance: ALBUTEROL
     Indication: Dyspnoea
     Route: 065
  17. POLYETHYLENE GLYCOL 3350 [Concomitant]
     Active Substance: POLYETHYLENE GLYCOL 3350
     Indication: Constipation
     Route: 048
  18. COTRIMOXAZOLE [Concomitant]
     Active Substance: SULFAMETHOXAZOLE\TRIMETHOPRIM
     Indication: Prophylaxis
     Dosage: 480,MG,QD
     Route: 048
     Dates: start: 20240327
  19. LINAGLIPTIN [Concomitant]
     Active Substance: LINAGLIPTIN
     Indication: Hyperglycaemia
     Dosage: 5,MG,QD
     Route: 048
     Dates: start: 20240329
  20. ACETAMINOPHEN [Concomitant]
     Active Substance: ACETAMINOPHEN
     Indication: Pain
     Route: 048
     Dates: start: 20240329
  21. FOLIC ACID [Concomitant]
     Active Substance: FOLIC ACID
     Indication: Anaemia
     Dosage: 5,MG,OD
     Route: 048
     Dates: start: 20240516

REACTIONS (5)
  - Atrial fibrillation [Recovered/Resolved]
  - Squamous cell carcinoma [Recovered/Resolved]
  - Microcytic anaemia [Recovering/Resolving]
  - Pleural effusion [Not Recovered/Not Resolved]
  - Anorectal polyp [Recovered/Resolved]

NARRATIVE: CASE EVENT DATE: 20240502
